FAERS Safety Report 12615133 (Version 1)
Quarter: 2016Q3

REPORT INFORMATION
  Report Type: Spontaneous
  Country: US (occurrence: US)
  Receive Date: 20160802
  Receipt Date: 20160802
  Transmission Date: 20161109
  Serious: No
  Sender: FDA-Public Use
  Company Number: US-BAUSCH-BL-2015-029734

PATIENT
  Sex: Female

DRUGS (2)
  1. ZELAPAR [Suspect]
     Active Substance: SELEGILINE HYDROCHLORIDE
     Dosage: 1.25MG ORALLY ONCE EVERY OTHER DAY
     Route: 048
     Dates: start: 201511
  2. ZELAPAR [Suspect]
     Active Substance: SELEGILINE HYDROCHLORIDE
     Indication: PARKINSON^S DISEASE
     Route: 048
     Dates: start: 201511

REACTIONS (4)
  - Dysarthria [Not Recovered/Not Resolved]
  - Vomiting [Not Recovered/Not Resolved]
  - Nausea [Not Recovered/Not Resolved]
  - Sluggishness [Not Recovered/Not Resolved]

NARRATIVE: CASE EVENT DATE: 201511
